FAERS Safety Report 7349800-9 (Version None)
Quarter: 2011Q1

REPORT INFORMATION
  Report Type: 
  Country: None (occurrence: None)
  Receive Date: 20110222
  Receipt Date: 20100805
  Transmission Date: 20110831
  Serious: Yes (Other)
  Sender: FDA-Public Use
  Company Number: 2010BH020979

PATIENT
  Age: 77 Year
  Sex: Female
  Weight: 50 kg

DRUGS (8)
  1. MULTI-VITAMINS [Concomitant]
  2. ADRENERGICS, INHALANTS [Concomitant]
  3. ARALAST [Suspect]
     Indication: ALPHA-1 ANTI-TRYPSIN DEFICIENCY
     Dosage: 125 MG/KG; EVERY 2 WK; IV
     Route: 042
     Dates: start: 20100201, end: 20100728
  4. XOPENEX [Concomitant]
  5. CALCIUM [Concomitant]
  6. CARBINOXAMINE MALEATE [Concomitant]
  7. VITAMIN D [Concomitant]
  8. VITAMIN B [Concomitant]

REACTIONS (13)
  - CHEST PAIN [None]
  - VEIN DISORDER [None]
  - INJECTION SITE PAIN [None]
  - VISUAL IMPAIRMENT [None]
  - THROAT TIGHTNESS [None]
  - TINNITUS [None]
  - CHEST DISCOMFORT [None]
  - NAUSEA [None]
  - ARTHROPATHY [None]
  - DYSPNOEA [None]
  - OEDEMA [None]
  - VOMITING [None]
  - PRURITUS [None]
